FAERS Safety Report 8409933-2 (Version None)
Quarter: 2012Q2

REPORT INFORMATION
  Report Type: 
  Country: None (occurrence: None)
  Receive Date: 20120605
  Receipt Date: 20120602
  Transmission Date: 20120825
  Serious: No
  Sender: FDA-Public Use
  Company Number: US-PFIZER INC-2012132748

PATIENT
  Sex: Male
  Weight: 81.633 kg

DRUGS (3)
  1. DILTIAZEM [Concomitant]
     Indication: HYPERTENSION
     Dosage: 360 MG, DAILY
  2. METOPROLOL [Concomitant]
     Indication: FACIAL PAIN
     Dosage: 600 MG, 3X/DAY
  3. VIAGRA [Suspect]
     Indication: ERECTILE DYSFUNCTION
     Dosage: 100 MG, TABLETS SPLIT IN HALF, 3 TIMES PER WEEK
     Route: 048

REACTIONS (1)
  - DRUG INEFFECTIVE [None]
